FAERS Safety Report 5366416-4 (Version None)
Quarter: 2007Q2

REPORT INFORMATION
  Report Type: 
  Country: None (occurrence: None)
  Receive Date: 20070622
  Receipt Date: 20070618
  Transmission Date: 20071010
  Serious: Yes (Hospitalization)
  Sender: FDA-Public Use
  Company Number: PHBS2007KR10286

PATIENT
  Sex: Male

DRUGS (2)
  1. CLOZARIL [Suspect]
     Dosage: 100 MG, ONCE/SINGLE
     Route: 048
  2. CLOZARIL [Suspect]
     Dosage: 50 MG, TID
     Route: 048

REACTIONS (2)
  - ACCIDENTAL OVERDOSE [None]
  - ASTHENIA [None]
